FAERS Safety Report 6004334-9 (Version None)
Quarter: 2008Q4

REPORT INFORMATION
  Report Type: 
  Country: None (occurrence: None)
  Receive Date: 20081215
  Receipt Date: 20081215
  Transmission Date: 20090506
  Serious: Yes (Life-Threatening, Other)
  Sender: FDA-Public Use
  Company Number: None

PATIENT
  Age: 59 Year
  Sex: Male
  Weight: 81.6475 kg

DRUGS (1)
  1. TOPROL-XL [Suspect]
     Indication: HYPERTENSION
     Dosage: 1 TABLET DAILY PO
     Route: 048
     Dates: start: 20080201, end: 20081110

REACTIONS (5)
  - BLOOD PRESSURE INADEQUATELY CONTROLLED [None]
  - DRUG INEFFECTIVE [None]
  - HEART RATE IRREGULAR [None]
  - THERAPEUTIC RESPONSE UNEXPECTED WITH DRUG SUBSTITUTION [None]
  - VENTRICULAR EXTRASYSTOLES [None]
